FAERS Safety Report 25903790 (Version 1)
Quarter: 2025Q4

REPORT INFORMATION
  Report Type: Spontaneous
  Country: CN (occurrence: CN)
  Receive Date: 20251010
  Receipt Date: 20251010
  Transmission Date: 20260117
  Serious: Yes (Hospitalization, Disabling, Other)
  Sender: GLAXOSMITHKLINE
  Company Number: CN-GLAXOSMITHKLINE INC-CN2025CHI124239

PATIENT
  Age: 18 Year
  Weight: 72 kg

DRUGS (7)
  1. BELIMUMAB [Suspect]
     Active Substance: BELIMUMAB
     Indication: Systemic lupus erythematosus
     Dosage: 480 MG
  2. BELIMUMAB [Suspect]
     Active Substance: BELIMUMAB
     Dosage: 600 MG
  3. BELIMUMAB [Suspect]
     Active Substance: BELIMUMAB
     Dosage: 720 MG
  4. BELIMUMAB [Suspect]
     Active Substance: BELIMUMAB
     Dosage: 600 MG
  5. METHYLPREDNISOLONE [Concomitant]
     Active Substance: METHYLPREDNISOLONE
     Indication: Inflammation
     Dosage: UNK
  6. PREDNISONE [Concomitant]
     Active Substance: PREDNISONE
     Indication: Product used for unknown indication
     Dosage: 25 MG, BID
  7. PREDNISONE [Concomitant]
     Active Substance: PREDNISONE
     Dosage: 25 MG, QD

REACTIONS (3)
  - Osteonecrosis [Recovering/Resolving]
  - Intermittent claudication [Recovering/Resolving]
  - Condition aggravated [Recovering/Resolving]

NARRATIVE: CASE EVENT DATE: 20250401
